FAERS Safety Report 8607371-0 (Version None)
Quarter: 2012Q3

REPORT INFORMATION
  Report Type: 
  Country: None (occurrence: None)
  Receive Date: 20120821
  Receipt Date: 20120816
  Transmission Date: 20120928
  Serious: No
  Sender: FDA-Public Use
  Company Number: US-PFIZER INC-2012201762

PATIENT
  Sex: Female

DRUGS (3)
  1. ZOLOFT [Suspect]
  2. NORVASC [Suspect]
  3. ARTHROTEC [Suspect]

REACTIONS (1)
  - ARTHRITIS [None]
